FAERS Safety Report 18988696 (Version 2)
Quarter: 2021Q1

REPORT INFORMATION
  Report Type: Other
  Country: SA (occurrence: SA)
  Receive Date: 20210309
  Receipt Date: 20210310
  Transmission Date: 20210420
  Serious: Yes (Hospitalization)
  Sender: FDA-Public Use
  Company Number: SA-B.BRAUN MEDICAL INC.-2107796

PATIENT
  Age: 68 Year
  Sex: Female

DRUGS (2)
  1. SODIUM CHLORIDE INJECTION USP 0264?7800?09 [Suspect]
     Active Substance: SODIUM CHLORIDE
     Indication: IRRIGATION THERAPY
     Route: 014
  2. EPINEPHRINE. [Concomitant]
     Active Substance: EPINEPHRINE

REACTIONS (3)
  - Metabolic acidosis [None]
  - Pulmonary oedema [None]
  - Pleural effusion [None]
